FAERS Safety Report 6209991-X (Version None)
Quarter: 2009Q2

REPORT INFORMATION
  Report Type: 
  Country: None (occurrence: None)
  Receive Date: 20090527
  Receipt Date: 20090518
  Transmission Date: 20091009
  Serious: Yes (Hospitalization)
  Sender: FDA-Public Use
  Company Number: GXKR2009AU05937

PATIENT
  Age: 64 Year
  Sex: Male

DRUGS (3)
  1. DOXYCYCLINE [Suspect]
     Indication: BREAST INFECTION
     Dosage: 100 MG/DAY, ORAL
     Route: 048
  2. DOXYCYCLINE [Suspect]
     Indication: EYE INFECTION
     Dosage: 100 MG/DAY, ORAL
     Route: 048
  3. LEVOTHYROXINE SODIUM [Concomitant]

REACTIONS (4)
  - BLOOD BLISTER [None]
  - GAIT DISTURBANCE [None]
  - HAEMARTHROSIS [None]
  - HAEMORRHAGE SUBCUTANEOUS [None]
